FAERS Safety Report 21267974 (Version 1)
Quarter: 2022Q3

REPORT INFORMATION
  Report Type: Report from Study
  Country: US (occurrence: US)
  Receive Date: 20220829
  Receipt Date: 20220829
  Transmission Date: 20221026
  Serious: Yes (Hospitalization, Other)
  Sender: FDA-Public Use
  Company Number: US-JAZZ-2022-US-028008

PATIENT
  Age: 43 Year
  Sex: Male

DRUGS (6)
  1. XYWAV [Suspect]
     Active Substance: CALCIUM OXYBATE\MAGNESIUM OXYBATE\POTASSIUM OXYBATE\SODIUM OXYBATE
     Indication: Narcolepsy
     Dosage: UNK
     Route: 048
  2. XYWAV [Suspect]
     Active Substance: CALCIUM OXYBATE\MAGNESIUM OXYBATE\POTASSIUM OXYBATE\SODIUM OXYBATE
     Indication: Cataplexy
  3. XYWAV [Suspect]
     Active Substance: CALCIUM OXYBATE\MAGNESIUM OXYBATE\POTASSIUM OXYBATE\SODIUM OXYBATE
     Indication: Somnolence
  4. IBUPROFEN [Concomitant]
     Active Substance: IBUPROFEN
     Dosage: 0000
     Dates: start: 20180502
  5. LORAZEPAM [Concomitant]
     Active Substance: LORAZEPAM
     Dosage: 0000
     Dates: start: 20181220
  6. LEXAPRO [Concomitant]
     Active Substance: ESCITALOPRAM OXALATE
     Dosage: 0000
     Dates: start: 20201116

REACTIONS (2)
  - Myocardial infarction [Unknown]
  - Hypertension [Unknown]

NARRATIVE: CASE EVENT DATE: 20220730
